FAERS Safety Report 17877703 (Version 1)
Quarter: 2020Q2

REPORT INFORMATION
  Report Type: Spontaneous
  Country: US (occurrence: US)
  Receive Date: 20200609
  Receipt Date: 20200609
  Transmission Date: 20200714
  Serious: Yes (Other)
  Sender: FDA-Public Use
  Company Number: US-PFIZER INC-2020221999

PATIENT
  Sex: Female

DRUGS (1)
  1. GEODON [Suspect]
     Active Substance: ZIPRASIDONE HYDROCHLORIDE\ZIPRASIDONE MESYLATE
     Dosage: 20 MG

REACTIONS (6)
  - Reaction to colouring [Recovered/Resolved]
  - Irritability [Recovered/Resolved]
  - Discomfort [Recovered/Resolved]
  - Mental impairment [Recovered/Resolved]
  - Product substitution issue [Recovered/Resolved]
  - Feeling abnormal [Recovered/Resolved]
